FAERS Safety Report 11104529 (Version 2)
Quarter: 2015Q3

REPORT INFORMATION
  Report Type: Spontaneous
  Country: US (occurrence: US)
  Receive Date: 20150511
  Receipt Date: 20150723
  Transmission Date: 20151125
  Serious: Yes (Other)
  Sender: FDA-Public Use
  Company Number: US-TEVA-558697USA

PATIENT
  Age: 75 Year
  Sex: Female
  Weight: 81.72 kg

DRUGS (3)
  1. LEVODOPA [Concomitant]
     Active Substance: LEVODOPA
     Indication: PARKINSON^S DISEASE
  2. AZILECT [Suspect]
     Active Substance: RASAGILINE MESYLATE
     Indication: PARKINSON^S DISEASE
     Route: 065
  3. REQUIP [Concomitant]
     Active Substance: ROPINIROLE HYDROCHLORIDE
     Indication: PARKINSON^S DISEASE

REACTIONS (10)
  - Dyskinesia [Unknown]
  - Speech disorder [Unknown]
  - Somnolence [Unknown]
  - Adverse event [Unknown]
  - Cognitive disorder [Unknown]
  - Insomnia [Recovered/Resolved]
  - Rash [Unknown]
  - Parkinson^s disease [Unknown]
  - Tremor [Unknown]
  - Fatigue [Unknown]
